FAERS Safety Report 11079883 (Version 1)
Quarter: 2015Q2

REPORT INFORMATION
  Report Type: Spontaneous
  Country: CZ (occurrence: CZ)
  Receive Date: 20150430
  Receipt Date: 20150430
  Transmission Date: 20150821
  Serious: Yes (Other)
  Sender: FDA-Public Use
  Company Number: CZ-TEVA-547685ISR

PATIENT
  Age: 51 Year
  Sex: Female

DRUGS (1)
  1. COPAXONE [Suspect]
     Active Substance: GLATIRAMER ACETATE
     Route: 058

REACTIONS (5)
  - Injection site atrophy [Unknown]
  - Breast cancer [Recovering/Resolving]
  - Neurological decompensation [Unknown]
  - Injection site induration [Unknown]
  - Multiple sclerosis [Unknown]
